FAERS Safety Report 23266147 (Version 4)
Quarter: 2024Q2

REPORT INFORMATION
  Report Type: Other
  Country: CA (occurrence: None)
  Receive Date: 20231206
  Receipt Date: 20240404
  Transmission Date: 20240716
  Serious: Yes (Other)
  Sender: FDA-Public Use
  Company Number: CA-ROCHE-2885552

PATIENT
  Sex: Male

DRUGS (1)
  1. OCREVUS [Suspect]
     Active Substance: OCRELIZUMAB
     Indication: Primary progressive multiple sclerosis
     Dosage: 300 MG AT DAY 0 AND 14, THEN 600 MG EVERY 6 MONTH
     Route: 042
     Dates: start: 20200723

REACTIONS (5)
  - Multiple sclerosis [Unknown]
  - Nasopharyngitis [Recovering/Resolving]
  - Pneumonia viral [Unknown]
  - White blood cell count decreased [Not Recovered/Not Resolved]
  - Influenza [Unknown]
